FAERS Safety Report 20523089 (Version 1)
Quarter: 2022Q1

REPORT INFORMATION
  Report Type: Report from Study
  Country: EG (occurrence: EG)
  Receive Date: 20220227
  Receipt Date: 20220227
  Transmission Date: 20220424
  Serious: Yes (Hospitalization, Other)
  Sender: FDA-Public Use
  Company Number: EG-NOVARTISPH-NVSC2022EG042238

PATIENT
  Age: 66 Year
  Sex: Female

DRUGS (7)
  1. KISQALI [Suspect]
     Active Substance: RIBOCICLIB
     Indication: Breast cancer
     Dosage: 3 DOSAGE FORM, Q3W (ONE WEEK OFF)
     Route: 065
     Dates: start: 20210522, end: 202110
  2. KISQALI [Suspect]
     Active Substance: RIBOCICLIB
     Dosage: 2 DOSAGE FORM, Q3W
     Route: 065
     Dates: start: 20220214
  3. FEMARA [Concomitant]
     Active Substance: LETROZOLE
     Indication: Breast cancer
     Dosage: 1 UNK, QD
     Route: 065
     Dates: start: 20210525, end: 202112
  4. OMEGA 3 [Concomitant]
     Active Substance: CAPSAICIN
     Indication: Vitamin supplementation
     Dosage: 1 UNK, QD
     Route: 065
     Dates: start: 202110, end: 202202
  5. ALFACALCIDOL [Concomitant]
     Active Substance: ALFACALCIDOL
     Indication: Vitamin supplementation
     Dosage: UNK
     Route: 065
  6. CONCOR 5 PLUS [Concomitant]
     Indication: Hypertension
     Dosage: 1 DOSAGE FORM (ONE TABLET AT NIGHT)
     Route: 065
  7. HYDROCHLOROTHIAZIDE\IRBESARTAN [Concomitant]
     Active Substance: HYDROCHLOROTHIAZIDE\IRBESARTAN
     Indication: Hypertension
     Dosage: 1 DOSAGE FORM (ONE TABLET IN THE MORNING)
     Route: 065

REACTIONS (5)
  - Haemoglobin decreased [Recovered/Resolved]
  - Liver function test increased [Recovered/Resolved]
  - Decreased immune responsiveness [Recovered/Resolved]
  - C-reactive protein increased [Unknown]
  - Blood pressure increased [Unknown]

NARRATIVE: CASE EVENT DATE: 20210601
